FAERS Safety Report 9207364 (Version 2)
Quarter: 2014Q1

REPORT INFORMATION
  Report Type: Spontaneous
  Country: US (occurrence: US)
  Receive Date: 20130403
  Receipt Date: 20140130
  Transmission Date: 20141002
  Serious: Yes (Hospitalization, Other)
  Sender: FDA-Public Use
  Company Number: US-BAYER-2013-039723

PATIENT
  Age: 32 Year
  Sex: Female

DRUGS (8)
  1. YAZ [Suspect]
     Dosage: UNK
     Dates: start: 2009, end: 2011
  2. CIPROFLOXACIN [Concomitant]
     Dosage: 250 MG, UNK
     Route: 048
  3. CIPRO [Concomitant]
     Route: 048
  4. LEVOXYL [Concomitant]
     Route: 048
  5. PERCOCET [Concomitant]
  6. PEPCID [Concomitant]
  7. SYNTHROID [Concomitant]
  8. NASACORT [Concomitant]

REACTIONS (5)
  - Gallbladder disorder [None]
  - Cholecystitis acute [None]
  - Injury [None]
  - Pain [None]
  - Emotional distress [None]
